FAERS Safety Report 7037407-2 (Version None)
Quarter: 2010Q4

REPORT INFORMATION
  Report Type: 
  Country: None (occurrence: None)
  Receive Date: 20101011
  Receipt Date: 20101004
  Transmission Date: 20110411
  Serious: Yes (Other)
  Sender: FDA-Public Use
  Company Number: GB-PFIZER INC-2010125427

PATIENT
  Age: 77 Year
  Sex: Male

DRUGS (4)
  1. AMLODIPINE BESYLATE [Suspect]
  2. ATORVASTATIN CALCIUM [Interacting]
     Dosage: UNK
     Dates: end: 20060101
  3. ATORVASTATIN CALCIUM [Interacting]
     Dosage: 40 MG, DAILY
     Dates: start: 20060101
  4. DILTIAZEM [Interacting]
     Dosage: 200 MG, DAILY

REACTIONS (5)
  - ASTHENIA [None]
  - CONTUSION [None]
  - DRUG INTERACTION [None]
  - MUSCULAR WEAKNESS [None]
  - SUICIDAL BEHAVIOUR [None]
